FAERS Safety Report 5494159-5 (Version None)
Quarter: 2007Q4

REPORT INFORMATION
  Report Type: 
  Country: None (occurrence: None)
  Receive Date: 20071024
  Receipt Date: 20071018
  Transmission Date: 20080405
  Serious: Yes (Other)
  Sender: FDA-Public Use
  Company Number: PHNU2007DE03494

PATIENT
  Sex: Female

DRUGS (4)
  1. CAFERGOT [Suspect]
     Indication: MIGRAINE
     Dosage: 1 TO 8 PER MONTH
     Route: 054
  2. CAFERGOT [Suspect]
     Dosage: 1 TO 8 PER MONTH
     Route: 048
  3. CONCOR [Concomitant]
     Dosage: 5 MG/DAY
     Route: 048
     Dates: start: 19820101
  4. SERUM LIPID REDUCING AGENTS [Concomitant]
     Dosage: UNK, UNK
     Dates: start: 20020101

REACTIONS (1)
  - DEMYELINATION [None]
